FAERS Safety Report 18684350 (Version 4)
Quarter: 2025Q3

REPORT INFORMATION
  Report Type: Report from Study
  Country: US (occurrence: US)
  Receive Date: 20201230
  Receipt Date: 20250922
  Transmission Date: 20251021
  Serious: Yes (Hospitalization, Other)
  Sender: TAKEDA
  Company Number: US-TAKEDA-US201934572

PATIENT
  Sex: Male
  Weight: 28 kg

DRUGS (23)
  1. IDURSULFASE [Suspect]
     Active Substance: IDURSULFASE
     Indication: Mucopolysaccharidosis
     Dosage: 12 MILLIGRAM, 1/WEEK
  2. IDURSULFASE [Suspect]
     Active Substance: IDURSULFASE
     Dosage: 12 MILLIGRAM, 1/WEEK
     Dates: start: 20130502
  3. DIPHENHYDRAMINE [Concomitant]
     Active Substance: DIPHENHYDRAMINE
  4. HEPARIN [Concomitant]
     Active Substance: HEPARIN SODIUM
  5. LIDOCAINE [Concomitant]
     Active Substance: LIDOCAINE
  6. SODIUM CHLORIDE [Concomitant]
     Active Substance: SODIUM CHLORIDE
  7. SODIUM CHLORIDE [Concomitant]
     Active Substance: SODIUM CHLORIDE
  8. RANITIDINE [Concomitant]
     Active Substance: RANITIDINE
  9. EPINEPHRINE [Concomitant]
     Active Substance: EPINEPHRINE
  10. SOLU-MEDROL [Concomitant]
     Active Substance: METHYLPREDNISOLONE SODIUM SUCCINATE
  11. BUDESONIDE [Concomitant]
     Active Substance: BUDESONIDE
     Indication: Product used for unknown indication
  12. PREDNISONE [Concomitant]
     Active Substance: PREDNISONE
     Indication: Product used for unknown indication
  13. VITAMIN B6 [Concomitant]
     Active Substance: PYRIDOXINE HYDROCHLORIDE
  14. LORATADINE [Concomitant]
     Active Substance: LORATADINE
  15. KEPPRA [Concomitant]
     Active Substance: LEVETIRACETAM
  16. ZONISAMIDE [Concomitant]
     Active Substance: ZONISAMIDE
  17. STERILE WATER [Concomitant]
     Active Substance: WATER
  18. CATHFLO ACTIVASE [Concomitant]
     Active Substance: ALTEPLASE
  19. ACETAMINOPHEN [Concomitant]
     Active Substance: ACETAMINOPHEN
  20. ZANTAC [Concomitant]
     Active Substance: RANITIDINE HYDROCHLORIDE
  21. VITAMIN B6 [Concomitant]
     Active Substance: PYRIDOXINE HYDROCHLORIDE
  22. FAMOTIDINE [Concomitant]
     Active Substance: FAMOTIDINE
  23. VITAMIN B [Concomitant]
     Active Substance: VITAMIN B

REACTIONS (7)
  - Urinary tract infection [Unknown]
  - Nephrolithiasis [Unknown]
  - Thrombosis in device [Unknown]
  - Respiratory disorder [Unknown]
  - Pneumonia [Unknown]
  - Developmental delay [Unknown]
  - Product dose omission issue [Unknown]
